FAERS Safety Report 22157655 (Version 3)
Quarter: 2024Q2

REPORT INFORMATION
  Report Type: Spontaneous
  Country: US (occurrence: US)
  Receive Date: 20230330
  Receipt Date: 20240608
  Transmission Date: 20240716
  Serious: No
  Sender: FDA-Public Use
  Company Number: US-SA-SAC20230329001435

PATIENT
  Age: 61 Year
  Sex: Female
  Weight: 88.435 kg

DRUGS (14)
  1. DUPIXENT [Suspect]
     Active Substance: DUPILUMAB
     Indication: Chronic rhinosinusitis with nasal polyps
     Dosage: 300 MG, QOW
     Route: 058
     Dates: start: 20230209
  2. ALBUTEROL SULFATE [Concomitant]
     Active Substance: ALBUTEROL SULFATE
  3. PREDNISONE [Concomitant]
     Active Substance: PREDNISONE
  4. PREDNISONE [Concomitant]
     Active Substance: PREDNISONE
  5. PRILOSEC [Concomitant]
     Active Substance: OMEPRAZOLE MAGNESIUM
  6. QVAR REDIHALER [Concomitant]
     Active Substance: BECLOMETHASONE DIPROPIONATE
  7. AMLODIPINE BESYLATE [Concomitant]
     Active Substance: AMLODIPINE BESYLATE
  8. AMLODIPINE BESYLATE [Concomitant]
     Active Substance: AMLODIPINE BESYLATE
  9. SINGULAIR [Concomitant]
     Active Substance: MONTELUKAST SODIUM
  10. SINGULAIR [Concomitant]
     Active Substance: MONTELUKAST SODIUM
  11. LIPITOR [Concomitant]
     Active Substance: ATORVASTATIN CALCIUM
  12. LIPITOR [Concomitant]
     Active Substance: ATORVASTATIN CALCIUM
  13. TRIAMCINOLONE ACETONIDE [Concomitant]
     Active Substance: TRIAMCINOLONE ACETONIDE
  14. TRIAMCINOLONE ACETONIDE [Concomitant]
     Active Substance: TRIAMCINOLONE ACETONIDE

REACTIONS (7)
  - Headache [Recovered/Resolved]
  - Bone pain [Recovered/Resolved]
  - Fatigue [Recovered/Resolved]
  - Rash erythematous [Recovering/Resolving]
  - Rash pruritic [Recovering/Resolving]
  - Rash papular [Recovering/Resolving]
  - Rash [Not Recovered/Not Resolved]

NARRATIVE: CASE EVENT DATE: 20230101
